FAERS Safety Report 7418038-9 (Version None)
Quarter: 2011Q2

REPORT INFORMATION
  Report Type: 
  Country: None (occurrence: None)
  Receive Date: 20110407
  Receipt Date: 20110330
  Transmission Date: 20111010
  Serious: Yes (Hospitalization)
  Sender: FDA-Public Use
  Company Number: 2011-0825

PATIENT
  Age: 68 Year
  Sex: Female

DRUGS (5)
  1. APO-GO PFS (APO-GO) (APOMORPHINE HYDROCHLORIDE) (APOMORPHINE HYDROCHLO [Suspect]
     Indication: PARKINSON'S DISEASE
     Dosage: (2 MG,CONTINUOUS NIFUSION),SUBCUTANEOUS ; (2.5 MG,CONTINUOUS INFUSION),SUBCUTANEOUS
     Route: 058
     Dates: start: 20110301, end: 20110302
  2. APO-GO PFS (APO-GO) (APOMORPHINE HYDROCHLORIDE) (APOMORPHINE HYDROCHLO [Suspect]
     Indication: PARKINSON'S DISEASE
     Dosage: (2 MG,CONTINUOUS NIFUSION),SUBCUTANEOUS ; (2.5 MG,CONTINUOUS INFUSION),SUBCUTANEOUS
     Route: 058
     Dates: start: 20110302, end: 20110312
  3. PRAMIPEXOLE DIHYDROCHLORIDE [Concomitant]
  4. L-DOPA (LEVODOPA) [Concomitant]
  5. COMTAN [Concomitant]

REACTIONS (6)
  - PALPITATIONS [None]
  - BRADYCARDIA [None]
  - HEART RATE DECREASED [None]
  - ARRHYTHMIA [None]
  - EXTRASYSTOLES [None]
  - DRUG ADMINISTRATION ERROR [None]
